FAERS Safety Report 4757345-5 (Version None)
Quarter: 2005Q3

REPORT INFORMATION
  Report Type: 
  Country: None (occurrence: None)
  Receive Date: 20050829
  Receipt Date: 20050816
  Transmission Date: 20060218
  Serious: Yes (Hospitalization, Other)
  Sender: FDA-Public Use
  Company Number: 2005116614

PATIENT
  Sex: Male

DRUGS (2)
  1. DIFLUCAN [Suspect]
     Indication: MENINGITIS CRYPTOCOCCAL
     Dosage: ORAL
     Route: 048
     Dates: end: 20050101
  2. ABELCET [Suspect]
     Indication: MENINGITIS CRYPTOCOCCAL
     Dates: start: 20050101

REACTIONS (3)
  - CONDITION AGGRAVATED [None]
  - MENINGITIS CRYPTOCOCCAL [None]
  - RENAL FAILURE ACUTE [None]
